FAERS Safety Report 17203505 (Version 1)
Quarter: 2019Q4

REPORT INFORMATION
  Report Type: Spontaneous
  Country: CA (occurrence: CA)
  Receive Date: 20191226
  Receipt Date: 20191226
  Transmission Date: 20200122
  Serious: Yes (Disabling)
  Sender: FDA-Public Use
  Company Number: CA-TEVA-2019-CA-1156352

PATIENT
  Age: 23 Year
  Sex: Female
  Weight: 61 kg

DRUGS (1)
  1. PREGABALIN. [Suspect]
     Active Substance: PREGABALIN
     Indication: COMPLEX REGIONAL PAIN SYNDROME
     Dosage: 600 MILLIGRAM DAILY;
     Route: 048

REACTIONS (9)
  - Hot flush [Unknown]
  - Speech disorder [Unknown]
  - Fall [Unknown]
  - Off label use [Unknown]
  - Product use in unapproved indication [Unknown]
  - Dizziness [Unknown]
  - Myalgia [Unknown]
  - Asthenia [Unknown]
  - Vision blurred [Unknown]
